FAERS Safety Report 9796402 (Version 2)
Quarter: 2014Q1

REPORT INFORMATION
  Report Type: Spontaneous
  Country: US (occurrence: US)
  Receive Date: 20140103
  Receipt Date: 20140226
  Transmission Date: 20141002
  Serious: Yes (Life-Threatening, Hospitalization)
  Sender: FDA-Public Use
  Company Number: US-BRISTOL-MYERS SQUIBB COMPANY-19950344

PATIENT
  Age: 71 Year
  Sex: Female

DRUGS (16)
  1. SPRYCEL [Suspect]
     Indication: LEUKAEMIA
  2. LASIX [Concomitant]
  3. DILTIAZEM HCL [Concomitant]
     Route: 048
  4. POTASSIUM [Concomitant]
  5. DIAMOX [Concomitant]
  6. SINGULAIR [Concomitant]
  7. ELAVIL [Concomitant]
  8. PRILOSEC [Concomitant]
     Dosage: 1DF= 1 CAPSULE.?20MG
  9. TEMODAR [Concomitant]
  10. ZINC [Concomitant]
  11. KLONOPIN [Concomitant]
  12. XARELTO [Concomitant]
  13. TORSEMIDE [Concomitant]
  14. ZETIA [Concomitant]
     Dosage: 1DF= 1 TAB.?10MG
     Route: 048
  15. AMBIEN [Concomitant]
     Dosage: 10MG
  16. TRAMADOL [Concomitant]
     Indication: PAIN
     Dosage: EVERY 6HRS
     Route: 048

REACTIONS (3)
  - Cardiac arrest [Unknown]
  - Pneumothorax [Unknown]
  - Fluid retention [Unknown]
